FAERS Safety Report 9360007 (Version 1)
Quarter: 2013Q2

REPORT INFORMATION
  Report Type: Spontaneous
  Country: JP (occurrence: JP)
  Receive Date: 20130621
  Receipt Date: 20130621
  Transmission Date: 20140414
  Serious: Yes (Other)
  Sender: FDA-Public Use
  Company Number: PHHY2013JP062222

PATIENT
  Sex: Female

DRUGS (3)
  1. CICLOSPORIN [Suspect]
     Indication: NEPHRITIC SYNDROME
  2. METHYLPREDNISOLONE [Suspect]
     Indication: NEPHRITIC SYNDROME
  3. PREDNISOLONE [Suspect]
     Indication: NEPHRITIC SYNDROME

REACTIONS (2)
  - Tachyphylaxis [Unknown]
  - Nephrotic syndrome [Unknown]
